FAERS Safety Report 19358808 (Version 1)
Quarter: 2021Q2

REPORT INFORMATION
  Report Type: Spontaneous
  Country: GB (occurrence: GB)
  Receive Date: 20210602
  Receipt Date: 20210602
  Transmission Date: 20210717
  Serious: Yes (Other)
  Sender: FDA-Public Use
  Company Number: GB-MYLANLABS-2021M1031616

PATIENT
  Age: 44 Year
  Sex: Female
  Weight: 83 kg

DRUGS (8)
  1. CODEINE PHOSPHATE [Concomitant]
     Active Substance: CODEINE PHOSPHATE
     Dosage: ONE OR TWO TO BE TAKEN UP TO FOUR TIMES A DAY
     Dates: start: 20210521
  2. HYDROXOCOBALAMIN [Concomitant]
     Active Substance: HYDROXOCOBALAMIN
     Dosage: 1 DOSAGE FORM, Q3MONTHS
     Route: 030
     Dates: start: 20190118
  3. LEVOTHYROXINE. [Concomitant]
     Active Substance: LEVOTHYROXINE
     Dosage: EACH MORNING
     Dates: start: 20200324
  4. SUMATRIPTAN. [Concomitant]
     Active Substance: SUMATRIPTAN
     Dosage: 1 DOSAGE FORM, PRN
     Dates: start: 20210412, end: 20210510
  5. PROPRANOLOL [Concomitant]
     Active Substance: PROPRANOLOL HYDROCHLORIDE
     Dosage: INCREASING
     Dates: start: 20210309
  6. FLUOXETINE [Concomitant]
     Active Substance: FLUOXETINE HYDROCHLORIDE
     Dosage: 1 DOSAGE FORM, BID
     Dates: start: 20200324
  7. CYCLIZINE [Concomitant]
     Active Substance: CYCLIZINE
     Dosage: 1 DOSAGE FORM, TID
     Dates: start: 20210226, end: 20210312
  8. TOPIRAMATE. [Suspect]
     Active Substance: TOPIRAMATE
     Indication: PRODUCT USED FOR UNKNOWN INDICATION
     Dosage: TO BE TAKEN AS DIRECTED BY NEUROLOGY.
     Dates: start: 20210430

REACTIONS (7)
  - Hypoaesthesia [Unknown]
  - Fatigue [Unknown]
  - Eye swelling [Unknown]
  - Erythema [Unknown]
  - Skin abrasion [Recovered/Resolved]
  - Rash [Recovered/Resolved]
  - Dysgeusia [Unknown]

NARRATIVE: CASE EVENT DATE: 2021
